FAERS Safety Report 4826485-4 (Version None)
Quarter: 2005Q4

REPORT INFORMATION
  Report Type: 
  Country: None (occurrence: None)
  Receive Date: 20051014
  Receipt Date: 20050824
  Transmission Date: 20060501
  Serious: Yes (Other)
  Sender: FDA-Public Use
  Company Number: 2005119270

PATIENT
  Sex: Male

DRUGS (7)
  1. MACUGEN [Suspect]
     Indication: MACULAR DEGENERATION
     Dosage: INTRAVITREOUS
  2. MECLIZINE [Suspect]
     Indication: VOMITING
     Dates: start: 20050801
  3. VITAMINS [Concomitant]
  4. OCUVITE (ASCORBIC ACID, RETINOL, TOCOPHEROL) [Concomitant]
  5. ZOCOR [Concomitant]
  6. LUTEIN (XANTHOPHYLL) [Concomitant]
  7. LISINOPRIL [Concomitant]

REACTIONS (6)
  - DIZZINESS [None]
  - HYPOACUSIS [None]
  - MALAISE [None]
  - NAUSEA [None]
  - SOMNOLENCE [None]
  - VOMITING [None]
